FAERS Safety Report 9727635 (Version 1)
Quarter: 2013Q4

REPORT INFORMATION
  Report Type: Spontaneous
  Country: US (occurrence: US)
  Receive Date: 20131203
  Receipt Date: 20131203
  Transmission Date: 20140711
  Serious: No
  Sender: FDA-Public Use
  Company Number: US-009507513-1311USA011062

PATIENT
  Sex: Female

DRUGS (1)
  1. DULERA [Suspect]
     Indication: ASTHMA
     Dosage: 2 PUFFS IN THE MORNING, 1 PUFF IN THE EVENING
     Route: 055
     Dates: start: 201211

REACTIONS (2)
  - Throat irritation [Unknown]
  - Wrong technique in drug usage process [Unknown]
